FAERS Safety Report 9729433 (Version 2)
Quarter: 2015Q3

REPORT INFORMATION
  Report Type: Spontaneous
  Country: US (occurrence: US)
  Receive Date: 20131204
  Receipt Date: 20150804
  Transmission Date: 20151125
  Serious: No
  Sender: FDA-Public Use
  Company Number: US-GILEAD-2009-0021396

PATIENT
  Age: 55 Year
  Sex: Male
  Weight: 74.39 kg

DRUGS (20)
  1. VIAGRA [Concomitant]
     Active Substance: SILDENAFIL CITRATE
  2. ZYRTEC [Concomitant]
     Active Substance: CETIRIZINE HYDROCHLORIDE
  3. AMBIEN [Concomitant]
     Active Substance: ZOLPIDEM TARTRATE
  4. DAILY MULTIVITAMIN [Concomitant]
     Active Substance: VITAMINS
  5. CLONIDINE. [Concomitant]
     Active Substance: CLONIDINE
  6. COUMADIN [Concomitant]
     Active Substance: WARFARIN SODIUM
  7. GABAPENTIN. [Concomitant]
     Active Substance: GABAPENTIN
  8. AMITRIPTYLINE [Concomitant]
     Active Substance: AMITRIPTYLINE
  9. PEPCID AC [Concomitant]
     Active Substance: FAMOTIDINE
  10. IMODIUM [Concomitant]
     Active Substance: LOPERAMIDE HYDROCHLORIDE
  11. KETAMINE [Concomitant]
     Active Substance: KETAMINE
  12. LIDOCAINE. [Concomitant]
     Active Substance: LIDOCAINE
  13. KETOPROFEN. [Concomitant]
     Active Substance: KETOPROFEN
  14. POLOXAMER GEL [Concomitant]
  15. LETAIRIS [Suspect]
     Active Substance: AMBRISENTAN
     Indication: PULMONARY ARTERIAL HYPERTENSION
     Route: 048
     Dates: start: 20070912
  16. FLONASE [Concomitant]
     Active Substance: FLUTICASONE PROPIONATE
  17. ZANTAC [Concomitant]
     Active Substance: RANITIDINE HYDROCHLORIDE
  18. REMODULIN [Concomitant]
     Active Substance: TREPROSTINIL
  19. ULTRAM [Concomitant]
     Active Substance: TRAMADOL HYDROCHLORIDE
  20. LECITHIN [Concomitant]
     Active Substance: LECITHIN

REACTIONS (1)
  - Nasal congestion [Unknown]
